FAERS Safety Report 10379137 (Version 2)
Quarter: 2018Q3

REPORT INFORMATION
  Report Type: Report from Study
  Country: ZA (occurrence: ZA)
  Receive Date: 20140812
  Receipt Date: 20180727
  Transmission Date: 20181010
  Serious: Yes (Congenital Anomaly, Other)
  Sender: FDA-Public Use
  Company Number: ZA-VIIV HEALTHCARE LIMITED-A1084686A

PATIENT
  Age: 0 Year
  Sex: Male
  Weight: 2.18 kg

DRUGS (10)
  1. PYRAZINAMIDE. [Concomitant]
     Active Substance: PYRAZINAMIDE
     Indication: PULMONARY TUBERCULOSIS
     Dosage: UNK, U
     Route: 064
     Dates: start: 20140416
  2. LAMIVUDINE. [Suspect]
     Active Substance: LAMIVUDINE
     Indication: HIV INFECTION
     Dosage: 300 MG, QD
     Route: 064
     Dates: start: 20050501
  3. TENOFOVIR DISOPROXIL FUMARATE. [Suspect]
     Active Substance: TENOFOVIR DISOPROXIL FUMARATE
     Indication: HIV INFECTION
     Dosage: 300 MG, QD
     Route: 064
     Dates: start: 20140408
  4. STAVUDINE. [Suspect]
     Active Substance: STAVUDINE
     Indication: HIV INFECTION
     Dosage: 60 MG, QD
     Route: 064
     Dates: start: 20050501, end: 20140408
  5. NEVIRAPINE. [Suspect]
     Active Substance: NEVIRAPINE
     Indication: HIV INFECTION
     Dosage: 400 MG, QD
     Route: 064
     Dates: start: 20050501, end: 20140408
  6. KALETRA [Suspect]
     Active Substance: LOPINAVIR\RITONAVIR
     Indication: HIV INFECTION
     Dosage: 8 DF, U, TOTAL DAILY DOSE OF 8 TABLETS/CAPSULES
     Route: 064
     Dates: start: 20140408
  7. ETHAMBUTOL [Concomitant]
     Active Substance: ETHAMBUTOL HYDROCHLORIDE
     Indication: PULMONARY TUBERCULOSIS
     Dosage: UNK, U
     Route: 064
     Dates: start: 20140416
  8. RIFAMPIN. [Concomitant]
     Active Substance: RIFAMPIN
     Indication: PULMONARY TUBERCULOSIS
     Dosage: UNK, U
     Route: 064
     Dates: start: 20140416
  9. ISONIAZIDE [Concomitant]
     Active Substance: ISONIAZID
     Indication: PULMONARY TUBERCULOSIS
     Dosage: UNK, U
     Route: 064
     Dates: start: 20140416
  10. FOLATE SUPPLEMENT [Concomitant]
     Indication: PRODUCT USED FOR UNKNOWN INDICATION
     Dosage: UNK
     Route: 064

REACTIONS (10)
  - Foetal growth restriction [Unknown]
  - Foot deformity [Unknown]
  - Pericardial effusion [Unknown]
  - Protrusion tongue [Unknown]
  - Dysmorphism [Unknown]
  - Foetal exposure during pregnancy [Unknown]
  - Low set ears [Unknown]
  - Congenital nose malformation [Unknown]
  - Low birth weight baby [Unknown]
  - Trisomy 21 [Unknown]

NARRATIVE: CASE EVENT DATE: 20140826
